FAERS Safety Report 26062227 (Version 1)
Quarter: 2025Q4

REPORT INFORMATION
  Report Type: Spontaneous
  Country: US (occurrence: US)
  Receive Date: 20251119
  Receipt Date: 20251119
  Transmission Date: 20260117
  Serious: No
  Sender: INNOGENIX, LLC
  Company Number: US-Innogenix, LLC-2188846

PATIENT

DRUGS (1)
  1. HALOPERIDOL [Suspect]
     Active Substance: HALOPERIDOL
     Indication: Tic

REACTIONS (2)
  - Tic [Not Recovered/Not Resolved]
  - Condition aggravated [Not Recovered/Not Resolved]
